FAERS Safety Report 5634925-6 (Version None)
Quarter: 2008Q1

REPORT INFORMATION
  Report Type: 
  Country: None (occurrence: None)
  Receive Date: 20080131
  Receipt Date: 20071116
  Transmission Date: 20080703
  Serious: No
  Sender: FDA-Public Use
  Company Number: 2007-US-000273

PATIENT
  Sex: Male
  Weight: 26.9 kg

DRUGS (3)
  1. INCRELEX [Suspect]
     Indication: BODY HEIGHT BELOW NORMAL
     Dates: start: 20070915, end: 20071113
  2. FOCALIN [Concomitant]
  3. CLONIDINE [Concomitant]

REACTIONS (1)
  - INJECTION SITE URTICARIA [None]
